FAERS Safety Report 4850530-3 (Version None)
Quarter: 2005Q4

REPORT INFORMATION
  Report Type: 
  Country: None (occurrence: None)
  Receive Date: 20051208
  Receipt Date: 20051129
  Transmission Date: 20060501
  Serious: Yes (Hospitalization, Other)
  Sender: FDA-Public Use
  Company Number: 2005145446

PATIENT
  Age: 68 Year
  Sex: Female
  Weight: 56.9 kg

DRUGS (4)
  1. EPIRUBICIN [Suspect]
     Indication: BREAST CANCER
     Dosage: 90 MG (90 MG, QD), INTRAVENOUS
     Route: 042
     Dates: start: 20051017
  2. SUNRYTHM               (PILSICAINIDE HYDROCHLORIDE) [Suspect]
     Indication: ARRHYTHMIA
     Dosage: (BID), ORAL
     Route: 048
     Dates: start: 20000101, end: 20051020
  3. FLUOROURACIL [Concomitant]
  4. CYCLOPHOSPHAMIDE [Concomitant]

REACTIONS (10)
  - ARRHYTHMIA [None]
  - ASTHENIA [None]
  - BLOOD PRESSURE SYSTOLIC INCREASED [None]
  - BREAST CANCER FEMALE [None]
  - DYSPNOEA [None]
  - INCORRECT DOSE ADMINISTERED [None]
  - NAUSEA [None]
  - PAIN [None]
  - VENTRICULAR EXTRASYSTOLES [None]
  - VENTRICULAR FIBRILLATION [None]
